FAERS Safety Report 10661680 (Version 2)
Quarter: 2015Q1

REPORT INFORMATION
  Report Type: Spontaneous
  Country: US (occurrence: US)
  Receive Date: 20141218
  Receipt Date: 20150106
  Transmission Date: 20150720
  Serious: Yes (Hospitalization)
  Sender: FDA-Public Use
  Company Number: US-BEH-2014047188

PATIENT
  Age: 56 Year
  Sex: Male
  Weight: 159 kg

DRUGS (12)
  1. LOSARTAN [Concomitant]
     Active Substance: LOSARTAN
     Route: 048
  2. METFORMIN [Concomitant]
     Active Substance: METFORMIN HYDROCHLORIDE
     Dosage: 500 MG TAB
     Route: 048
  3. VALCYTE [Concomitant]
     Active Substance: VALGANCICLOVIR HYDROCHLORIDE
     Dosage: ONE TIME EVERY OTHER DAY
     Route: 048
  4. HIZENTRA [Suspect]
     Active Substance: HUMAN IMMUNOGLOBULIN G
     Route: 058
     Dates: start: 20141119, end: 20141119
  5. PANTOPRAZOLE [Concomitant]
     Active Substance: PANTOPRAZOLE SODIUM
     Route: 048
  6. HIZENTRA [Suspect]
     Active Substance: HUMAN IMMUNOGLOBULIN G
     Indication: IMMUNODEFICIENCY COMMON VARIABLE
     Route: 058
     Dates: start: 20141113, end: 20141113
  7. POTASSIUM CHLORIDE ER [Concomitant]
     Active Substance: POTASSIUM CHLORIDE
     Route: 048
  8. METOPROLOL SUCCINATE ER [Concomitant]
     Active Substance: METOPROLOL SUCCINATE
     Route: 048
  9. HIZENTRA [Suspect]
     Active Substance: HUMAN IMMUNOGLOBULIN G
     Route: 058
     Dates: end: 20141127
  10. LASIX [Concomitant]
     Active Substance: FUROSEMIDE
     Route: 048
  11. LIDOCAINE/PRILOCAINE [Concomitant]
  12. PREDNISONE. [Concomitant]
     Active Substance: PREDNISONE
     Route: 048

REACTIONS (5)
  - Dyspnoea [Recovering/Resolving]
  - Pulmonary embolism [Recovering/Resolving]
  - Oedema peripheral [Recovering/Resolving]
  - Weight increased [Recovering/Resolving]
  - Hepatic cirrhosis [Unknown]

NARRATIVE: CASE EVENT DATE: 20141203
